FAERS Safety Report 6723711-1 (Version None)
Quarter: 2010Q2

REPORT INFORMATION
  Report Type: 
  Country: None (occurrence: None)
  Receive Date: 20100513
  Receipt Date: 20100430
  Transmission Date: 20101027
  Serious: Yes (Hospitalization)
  Sender: FDA-Public Use
  Company Number: BE-ELI_LILLY_AND_COMPANY-BE200912004207

PATIENT
  Sex: Female
  Weight: 110 kg

DRUGS (9)
  1. PEMETREXED [Suspect]
     Indication: NON-SMALL CELL LUNG CANCER
     Dosage: 500 MG/M2, DAY 1 EVERY 21 DAYS
     Route: 042
     Dates: start: 20090828, end: 20091102
  2. CISPLATIN [Suspect]
     Indication: NON-SMALL CELL LUNG CANCER
     Dosage: 75 MG/M2, DAY 1 EVERY 21 DAYS
     Route: 042
     Dates: start: 20090828, end: 20091102
  3. VITAMIN B-12 [Concomitant]
     Dates: start: 20090820, end: 20091102
  4. DEXAMETHASONE [Concomitant]
     Dates: start: 20090827, end: 20091103
  5. FURADANTINE [Concomitant]
  6. LASIX [Concomitant]
  7. SPASFON /00934601/ [Concomitant]
  8. ASAFLOW [Concomitant]
  9. ELTHYRONE [Concomitant]

REACTIONS (1)
  - PLEURAL EFFUSION [None]
